FAERS Safety Report 6706494-0 (Version None)
Quarter: 2010Q2

REPORT INFORMATION
  Report Type: 
  Country: None (occurrence: None)
  Receive Date: 20100503
  Receipt Date: 20100421
  Transmission Date: 20101027
  Serious: Yes (Other)
  Sender: FDA-Public Use
  Company Number: PHHY2010US26145

PATIENT

DRUGS (1)
  1. VALTURNA [Suspect]
     Dosage: 150/160 MG

REACTIONS (1)
  - SYNCOPE [None]
